FAERS Safety Report 7681509 (Version 2)
Quarter: 2012Q4

REPORT INFORMATION
  Report Type: 
  Country: DE (occurrence: DE)
  Receive Date: 20101124
  Receipt Date: 20121123
  Transmission Date: 20130627
  Serious: Yes (Death, Hospitalization)
  Sender: FDA-Public Use
  Company Number: DE-RANBAXY-2010RR-39477

PATIENT
  Age: 20 Year
  Sex: Male
  Weight: 62 kg

DRUGS (2)
  1. PARACETAMOL [Suspect]
     Indication: INFLUENZA LIKE ILLNESS
     Dosage: UNK
     Route: 048
     Dates: start: 201007, end: 20101012
  2. REBIF [Suspect]
     Indication: MULTIPLE SCLEROSIS
     Dosage: 44 ug, 3/week
     Route: 058
     Dates: start: 201007, end: 20101012

REACTIONS (1)
  - Liver injury [Recovering/Resolving]
